FAERS Safety Report 5941760-8 (Version None)
Quarter: 2008Q4

REPORT INFORMATION
  Report Type: 
  Country: None (occurrence: None)
  Receive Date: 20081031
  Receipt Date: 20081022
  Transmission Date: 20090506
  Serious: Yes (Hospitalization)
  Sender: FDA-Public Use
  Company Number: 2008BI016369

PATIENT
  Age: 65 Year
  Sex: Female
  Weight: 78.0187 kg

DRUGS (1)
  1. AVONEX [Suspect]
     Indication: MULTIPLE SCLEROSIS
     Dosage: IM 30 UG;QW;IM
     Route: 030
     Dates: start: 19990101

REACTIONS (2)
  - BONE DISORDER [None]
  - MUSCULOSKELETAL PAIN [None]
